FAERS Safety Report 9289369 (Version 1)
Quarter: 2013Q2

REPORT INFORMATION
  Report Type: Spontaneous
  Country: CA (occurrence: CA)
  Receive Date: 20130514
  Receipt Date: 20130514
  Transmission Date: 20140414
  Serious: Yes (Other)
  Sender: FDA-Public Use
  Company Number: PHHY2013CA046701

PATIENT
  Sex: Female

DRUGS (6)
  1. FEMARA [Suspect]
     Dosage: 2.5 MG, UNK
  2. TAMOXIFEN [Suspect]
     Dosage: UNK UKN, UNK
  3. TAXOTERE [Suspect]
     Dosage: UNK UKN, UNK
  4. VINORELBINE [Suspect]
     Dosage: UNK UKN, UNK
  5. XELODA [Suspect]
     Dosage: UNK UKN, UNK
  6. ZOLADEX [Suspect]
     Dosage: UNK UKN, UNK

REACTIONS (2)
  - Breast cancer [Unknown]
  - Malignant neoplasm progression [Unknown]
